FAERS Safety Report 10570162 (Version 3)
Quarter: 2015Q2

REPORT INFORMATION
  Report Type: Report from Study
  Country: IT (occurrence: IT)
  Receive Date: 20141107
  Receipt Date: 20150406
  Transmission Date: 20150821
  Serious: Yes (Other)
  Sender: FDA-Public Use
  Company Number: IT-ROCHE-1485676

PATIENT
  Age: 2 Month
  Sex: Female

DRUGS (2)
  1. PULMOZYME [Suspect]
     Active Substance: DORNASE ALFA
     Dosage: 6 VAILS
     Route: 055
     Dates: start: 2002, end: 2002
  2. PULMOZYME [Suspect]
     Active Substance: DORNASE ALFA
     Indication: ATELECTASIS
     Route: 055
     Dates: start: 2002, end: 2002

REACTIONS (2)
  - Off label use [Unknown]
  - Respiratory failure [Recovering/Resolving]
